FAERS Safety Report 8038524-0 (Version None)
Quarter: 2012Q1

REPORT INFORMATION
  Report Type: 
  Country: None (occurrence: None)
  Receive Date: 20120111
  Receipt Date: 20111209
  Transmission Date: 20120608
  Serious: No
  Sender: FDA-Public Use
  Company Number: US-AMGEN-USASP2011065911

PATIENT
  Age: 53 Year
  Sex: Female

DRUGS (1)
  1. ENBREL [Suspect]
     Indication: BEHCET'S SYNDROME
     Dosage: 50 MG, QWK
     Dates: start: 20111121

REACTIONS (26)
  - SINUS HEADACHE [None]
  - RHINORRHOEA [None]
  - COUGH [None]
  - MUCOUS STOOLS [None]
  - INJECTION SITE SWELLING [None]
  - ASTHENIA [None]
  - OROPHARYNGEAL PAIN [None]
  - INFLUENZA LIKE ILLNESS [None]
  - FATIGUE [None]
  - CHEST DISCOMFORT [None]
  - INJECTION SITE HAEMATOMA [None]
  - DIARRHOEA [None]
  - ARTHRALGIA [None]
  - SINUSITIS [None]
  - INJECTION SITE ERYTHEMA [None]
  - LYMPHADENOPATHY [None]
  - CHILLS [None]
  - FEELING ABNORMAL [None]
  - MUSCULAR WEAKNESS [None]
  - BRONCHITIS [None]
  - ABDOMINAL DISCOMFORT [None]
  - JOINT STIFFNESS [None]
  - VISUAL IMPAIRMENT [None]
  - BACK PAIN [None]
  - GASTROINTESTINAL DISORDER [None]
  - ABDOMINAL PAIN UPPER [None]
